FAERS Safety Report 19907290 (Version 1)
Quarter: 2021Q4

REPORT INFORMATION
  Report Type: Report from Study
  Country: US (occurrence: US)
  Receive Date: 20211001
  Receipt Date: 20211001
  Transmission Date: 20220303
  Serious: Yes (Hospitalization, Other)
  Sender: FDA-Public Use
  Company Number: US-TASMAN PHARMA, INC.-2021TSM00226

PATIENT
  Sex: Male
  Weight: 90.7 kg

DRUGS (4)
  1. CLOZAPINE [Suspect]
     Active Substance: CLOZAPINE
     Indication: Schizoaffective disorder
     Dosage: UNK
     Dates: start: 2016
  2. CLOZAPINE [Suspect]
     Active Substance: CLOZAPINE
     Indication: Bipolar disorder
  3. CLOZAPINE [Suspect]
     Active Substance: CLOZAPINE
     Indication: Mental disorder
  4. RISPERIDONE LONG ACTING SHOT [Concomitant]
     Dosage: UNK
     Dates: start: 201607

REACTIONS (8)
  - Thrombosis [Recovering/Resolving]
  - Cardiomegaly [Recovering/Resolving]
  - Drug hypersensitivity [Recovering/Resolving]
  - Pyrexia [Recovering/Resolving]
  - Seizure [Recovering/Resolving]
  - Aphasia [Recovering/Resolving]
  - Heart rate irregular [Recovering/Resolving]
  - Diarrhoea [Recovering/Resolving]

NARRATIVE: CASE EVENT DATE: 20160101
